FAERS Safety Report 15959928 (Version 1)
Quarter: 2019Q1

REPORT INFORMATION
  Report Type: Spontaneous
  Country: US (occurrence: US)
  Receive Date: 20190214
  Receipt Date: 20190214
  Transmission Date: 20190417
  Serious: No
  Sender: FDA-Public Use
  Company Number: US-ROCHE-2088685

PATIENT
  Sex: Female

DRUGS (2)
  1. ERIVEDGE [Suspect]
     Active Substance: VISMODEGIB
     Indication: BASAL CELL CARCINOMA
     Dosage: DAILY
     Route: 048
     Dates: start: 20171208
  2. ERIVEDGE [Suspect]
     Active Substance: VISMODEGIB
     Dosage: ONGOING
     Route: 048
     Dates: start: 20171130

REACTIONS (5)
  - Weight decreased [Unknown]
  - Decreased appetite [Unknown]
  - Urinary tract infection [Unknown]
  - Ageusia [Unknown]
  - Fatigue [Unknown]
